FAERS Safety Report 4692105-5 (Version None)
Quarter: 2005Q2

REPORT INFORMATION
  Report Type: 
  Country: None (occurrence: None)
  Receive Date: 20050614
  Receipt Date: 20050526
  Transmission Date: 20051028
  Serious: Yes (Death)
  Sender: FDA-Public Use
  Company Number: 1833

PATIENT
  Age: 49 Year
  Sex: Male

DRUGS (1)
  1. AVINZA 120 MG [Suspect]

REACTIONS (2)
  - ACCIDENTAL OVERDOSE [None]
  - SELF-MEDICATION [None]
